FAERS Safety Report 6883010-4 (Version None)
Quarter: 2010Q3

REPORT INFORMATION
  Report Type: 
  Country: None (occurrence: None)
  Receive Date: 20100729
  Receipt Date: 20100707
  Transmission Date: 20110219
  Serious: Yes (Other)
  Sender: FDA-Public Use
  Company Number: US-TEVA-242619USA

PATIENT
  Sex: Female

DRUGS (1)
  1. AVIANE-21 [Suspect]
     Dosage: 0.10MG/0.02MG
     Route: 048

REACTIONS (2)
  - MENINGITIS [None]
  - PYREXIA [None]
